FAERS Safety Report 9359171 (Version 2)
Quarter: 2013Q3

REPORT INFORMATION
  Report Type: Spontaneous
  Country: CH (occurrence: CH)
  Receive Date: 20130620
  Receipt Date: 20130730
  Transmission Date: 20140515
  Serious: Yes (Disabling, Other)
  Sender: FDA-Public Use
  Company Number: CH-BAXTER-2013BAX022422

PATIENT
  Age: 64 Year
  Sex: Female
  Weight: 64 kg

DRUGS (16)
  1. ENDOXAN 1 G [Suspect]
     Indication: NON-HODGKIN^S LYMPHOMA
     Route: 041
     Dates: start: 20090402
  2. ENDOXAN 1 G [Suspect]
     Route: 041
     Dates: start: 20090417, end: 20090417
  3. ENDOXAN 1 G [Suspect]
     Route: 041
     Dates: start: 20090509, end: 20090509
  4. ENDOXAN 1 G [Suspect]
     Route: 041
     Dates: start: 20130402, end: 20130402
  5. MABTHERA [Suspect]
     Indication: NON-HODGKIN^S LYMPHOMA
     Route: 041
     Dates: start: 20090401, end: 20090401
  6. MABTHERA [Suspect]
     Route: 041
     Dates: start: 20090416, end: 20090416
  7. MABTHERA [Suspect]
     Route: 041
     Dates: start: 20090508, end: 20090508
  8. MABTHERA [Suspect]
     Route: 041
     Dates: start: 20130401, end: 20130401
  9. ONCOVIN [Suspect]
     Indication: NON-HODGKIN^S LYMPHOMA
     Route: 040
     Dates: start: 20090402, end: 20090402
  10. ONCOVIN [Suspect]
     Route: 040
     Dates: start: 20090417, end: 20090417
  11. ONCOVIN [Suspect]
     Route: 040
     Dates: start: 20090509, end: 20090509
  12. ONCOVIN [Suspect]
     Route: 040
     Dates: start: 20130402, end: 20130402
  13. NEULASTA [Suspect]
     Indication: NON-HODGKIN^S LYMPHOMA
     Route: 058
     Dates: start: 20090403, end: 20090403
  14. NEULASTA [Suspect]
     Route: 058
     Dates: start: 20130403, end: 20130403
  15. ADRIBLASTIN [Suspect]
     Indication: NON-HODGKIN^S LYMPHOMA
     Route: 040
     Dates: start: 20090402, end: 20090509
  16. PREDNISONE [Concomitant]
     Indication: PRODUCT USED FOR UNKNOWN INDICATION
     Route: 048
     Dates: start: 20090402, end: 20090406

REACTIONS (5)
  - Pain in extremity [Recovered/Resolved with Sequelae]
  - Polyneuropathy [Recovered/Resolved with Sequelae]
  - Dizziness [Recovered/Resolved with Sequelae]
  - Gait disturbance [Recovered/Resolved with Sequelae]
  - Hypoaesthesia [Recovered/Resolved with Sequelae]
